FAERS Safety Report 12628879 (Version 1)
Quarter: 2016Q3

REPORT INFORMATION
  Report Type: Spontaneous
  Country: US (occurrence: None)
  Receive Date: 20160805
  Receipt Date: 20160805
  Transmission Date: 20161109
  Serious: Yes (Other)
  Sender: FDA-Public Use
  Company Number: None

PATIENT
  Age: 49 Year
  Sex: Female
  Weight: 68.49 kg

DRUGS (8)
  1. PROGESTERONE. [Concomitant]
     Active Substance: PROGESTERONE
  2. MULTIVITAMIN [Concomitant]
     Active Substance: VITAMINS
  3. DUAVEE [Concomitant]
     Active Substance: BAZEDOXIFENE ACETATE\ESTROGENS, CONJUGATED
  4. EVENING PRIMROSE [Concomitant]
  5. ALPRAZOLAM. [Concomitant]
     Active Substance: ALPRAZOLAM
  6. VITAMIN D [Concomitant]
     Active Substance: CHOLECALCIFEROL
  7. FISH OIL [Concomitant]
     Active Substance: FISH OIL
  8. ESTRADIOL. [Suspect]
     Active Substance: ESTRADIOL
     Indication: HORMONE LEVEL ABNORMAL
     Dosage: 5 PATCH(ES) TWICE PER WEEK APPLIED AS MEDICATED PATCH TO SKIN
     Dates: start: 20160421, end: 20160729

REACTIONS (1)
  - Colitis [None]

NARRATIVE: CASE EVENT DATE: 20160627
